FAERS Safety Report 20262808 (Version 1)
Quarter: 2021Q4

REPORT INFORMATION
  Report Type: Spontaneous
  Country: FR (occurrence: FR)
  Receive Date: 20211231
  Receipt Date: 20211231
  Transmission Date: 20220303
  Serious: Yes (Hospitalization)
  Sender: FDA-Public Use
  Company Number: None

PATIENT
  Age: 69 Year
  Sex: Male
  Weight: 101 kg

DRUGS (7)
  1. PAROXETINE [Suspect]
     Active Substance: PAROXETINE
     Route: 065
  2. ALFUZOSIN HYDROCHLORIDE [Concomitant]
     Active Substance: ALFUZOSIN HYDROCHLORIDE
  3. INSULIN NOS [Concomitant]
     Active Substance: INSULIN NOS
  4. CEFEPIME [Concomitant]
     Active Substance: CEFEPIME HYDROCHLORIDE
  5. LATANOPROST [Concomitant]
     Active Substance: LATANOPROST
     Dosage: SOLUTION IN A SINGLE-DOSE CONTAINER,50 MICROGRAMS / ML,
  6. ENOXAPARIN [Concomitant]
     Active Substance: ENOXAPARIN
     Dosage: CRUSIA 4000 IU (40 MG) / 0.4 ML
  7. TIMOLOL MALEATE [Concomitant]
     Active Substance: TIMOLOL MALEATE
     Dosage: IN SINGLE-DOSE CONTAINER, (1.25 MG / 0.25 ML),

REACTIONS (1)
  - Neutropenia [Recovered/Resolved]

NARRATIVE: CASE EVENT DATE: 20210930
